FAERS Safety Report 4506339-3 (Version None)
Quarter: 2004Q4

REPORT INFORMATION
  Report Type: 
  Country: None (occurrence: None)
  Receive Date: 20041025
  Receipt Date: 20040116
  Transmission Date: 20050328
  Serious: Yes (Other)
  Sender: FDA-Public Use
  Company Number: US-JNJFOC-20031006755

PATIENT
  Age: 32 Year
  Sex: Female
  Weight: 61.8 kg

DRUGS (4)
  1. INFLIXIMAB (INFLIXIMAB, RECOMBINANT) LYOPHILIZED POWDER [Suspect]
     Indication: RHEUMATOID ARTHRITIS
     Dosage: 5 MG/KG, INTRAVENOUS
     Route: 042
     Dates: start: 20030428, end: 20030428
  2. LEFLUNOMIDE [Suspect]
     Indication: RHEUMATOID ARTHRITIS
     Dosage: 20 MG, ORAL
     Route: 048
     Dates: end: 20030127
  3. ETANERCEPT (ETANERCEPT) [Concomitant]
  4. PREDNISONE [Concomitant]

REACTIONS (2)
  - HEPATITIS [None]
  - RASH PUSTULAR [None]
